FAERS Safety Report 17378433 (Version 1)
Quarter: 2020Q1

REPORT INFORMATION
  Report Type: Spontaneous
  Country: US (occurrence: US)
  Receive Date: 20200206
  Receipt Date: 20200206
  Transmission Date: 20200409
  Serious: No
  Sender: FDA-Public Use
  Company Number: US-ABBVIE-19K-163-2644274-00

PATIENT
  Age: 51 Year
  Sex: Male

DRUGS (9)
  1. DILAUDID [Concomitant]
     Active Substance: HYDROMORPHONE HYDROCHLORIDE
     Indication: BACK PAIN
  2. MAGNESIUM [Concomitant]
     Active Substance: MAGNESIUM
     Indication: PRODUCT USED FOR UNKNOWN INDICATION
  3. MELATONIN [Concomitant]
     Active Substance: MELATONIN
     Indication: PRODUCT USED FOR UNKNOWN INDICATION
  4. TURMERIC [Concomitant]
     Active Substance: HERBALS\TURMERIC
     Indication: PRODUCT USED FOR UNKNOWN INDICATION
  5. AMBIEN [Concomitant]
     Active Substance: ZOLPIDEM TARTRATE
     Indication: PRODUCT USED FOR UNKNOWN INDICATION
  6. TIZANIDINE. [Concomitant]
     Active Substance: TIZANIDINE
     Indication: PRODUCT USED FOR UNKNOWN INDICATION
  7. HUMIRA [Suspect]
     Active Substance: ADALIMUMAB
     Indication: RHEUMATOID ARTHRITIS
     Route: 058
     Dates: start: 201808
  8. ADEMETIONINE. [Concomitant]
     Active Substance: ADEMETIONINE
     Indication: PRODUCT USED FOR UNKNOWN INDICATION
  9. FENTANYL. [Concomitant]
     Active Substance: FENTANYL
     Indication: BACK PAIN

REACTIONS (4)
  - Injection site haemorrhage [Not Recovered/Not Resolved]
  - Device issue [Recovered/Resolved]
  - Incorrect dose administered [Recovered/Resolved]
  - Injection site pain [Not Recovered/Not Resolved]

NARRATIVE: CASE EVENT DATE: 201808
